FAERS Safety Report 7258761-2 (Version None)
Quarter: 2011Q1

REPORT INFORMATION
  Report Type: 
  Country: None (occurrence: None)
  Receive Date: 20110129
  Receipt Date: 20100528
  Transmission Date: 20110831
  Serious: No
  Sender: FDA-Public Use
  Company Number: US-ABBOTT-10P-163-0648152-00

PATIENT
  Sex: Female

DRUGS (3)
  1. LISINOPRIL [Concomitant]
     Indication: HYPERTENSION
  2. HUMIRA [Suspect]
     Indication: CROHN'S DISEASE
     Dates: start: 20090101
  3. HUMIRA [Suspect]
     Dates: start: 20090410

REACTIONS (4)
  - OROPHARYNGEAL PAIN [None]
  - LARYNGITIS [None]
  - COUGH [None]
  - WHEEZING [None]
